FAERS Safety Report 6378594-9 (Version None)
Quarter: 2009Q3

REPORT INFORMATION
  Report Type: 
  Country: None (occurrence: None)
  Receive Date: 20090928
  Receipt Date: 20090918
  Transmission Date: 20100115
  Serious: Yes (Other)
  Sender: FDA-Public Use
  Company Number: DE-TEVA-209860ISR

PATIENT
  Sex: Female

DRUGS (1)
  1. FLUOROURACIL [Suspect]
     Route: 042

REACTIONS (2)
  - BLOOD BILIRUBIN INCREASED [None]
  - PROTHROMBIN TIME SHORTENED [None]
